FAERS Safety Report 8949446 (Version 1)
Quarter: 2012Q4

REPORT INFORMATION
  Report Type: 
  Country: GR (occurrence: GR)
  Receive Date: 20121206
  Receipt Date: 20121206
  Transmission Date: 20130627
  Serious: Yes (Other)
  Sender: FDA-Public Use
  Company Number: GR-PFIZER INC-2012304557

PATIENT
  Age: 72 Year
  Sex: Female
  Weight: 75 kg

DRUGS (2)
  1. LIPITOR [Suspect]
     Indication: HYPERLIPIDAEMIA
     Dosage: 10 mg, 1x/day
     Route: 048
  2. APROVEL [Suspect]
     Indication: HYPERTENSION ARTERIAL
     Dosage: 75 mg, 1x/day
     Route: 048
     Dates: start: 201208, end: 20121120

REACTIONS (3)
  - Dermatitis [Recovered/Resolved]
  - Lip oedema [Recovered/Resolved]
  - Periorbital oedema [Recovered/Resolved]
